FAERS Safety Report 10897875 (Version 1)
Quarter: 2015Q1

REPORT INFORMATION
  Report Type: Other
  Country: RO (occurrence: RO)
  Receive Date: 20150309
  Receipt Date: 20150309
  Transmission Date: 20150721
  Serious: Yes (Hospitalization, Other)
  Sender: FDA-Public Use
  Company Number: RO-ACTELION-A-CH2015-113949

PATIENT
  Age: 40 Year
  Sex: Female

DRUGS (3)
  1. TRACLEER [Suspect]
     Active Substance: BOSENTAN\BOSENTAN MONOHYDRATE
     Indication: PULMONARY ARTERIAL HYPERTENSION
     Dosage: 125 MG, BID
     Route: 048
     Dates: start: 2008
  2. TREPROSTINIL [Concomitant]
     Active Substance: TREPROSTINIL
  3. SILDENAFIL. [Concomitant]
     Active Substance: SILDENAFIL
     Dosage: 25 MG, TID
     Route: 048
     Dates: start: 2008

REACTIONS (17)
  - Concomitant disease aggravated [Unknown]
  - Ascites [Unknown]
  - General physical health deterioration [Unknown]
  - Biopsy bronchus [Unknown]
  - Disease progression [Unknown]
  - Condition aggravated [Unknown]
  - Right ventricular failure [Unknown]
  - Renal failure [Not Recovered/Not Resolved]
  - Pulmonary arterial hypertension [Unknown]
  - Exercise tolerance decreased [Unknown]
  - Haemodialysis [Unknown]
  - Pericardial effusion [Unknown]
  - Microcytic anaemia [Not Recovered/Not Resolved]
  - Lung transplant [Recovered/Resolved]
  - Dyspnoea at rest [Unknown]
  - Syncope [Unknown]
  - Impaired gastric emptying [Recovered/Resolved]

NARRATIVE: CASE EVENT DATE: 2008
